FAERS Safety Report 8928806 (Version 1)
Quarter: 2012Q4

REPORT INFORMATION
  Report Type: Spontaneous
  Country: US (occurrence: None)
  Receive Date: 20121120
  Receipt Date: 20121120
  Transmission Date: 20130627
  Serious: Yes (Other)
  Sender: FDA-Public Use
  Company Number: AUR-APL-2012-04870

PATIENT
  Age: 48 Year
  Sex: Female
  Weight: 63.49 kg

DRUGS (2)
  1. VENLAFAXINE [Suspect]
     Indication: PANIC DISORDER
  2. PROTONIX (PANTOPRAZOLE) [Concomitant]

REACTIONS (2)
  - Drug ineffective [None]
  - Panic attack [None]
